FAERS Safety Report 8472088-2 (Version None)
Quarter: 2012Q2

REPORT INFORMATION
  Report Type: 
  Country: None (occurrence: None)
  Receive Date: 20120323
  Receipt Date: 20111006
  Transmission Date: 20120825
  Serious: Yes (Other)
  Sender: FDA-Public Use
  Company Number: 163-21880-11090162

PATIENT
  Age: 78 Year
  Sex: Male
  Weight: 96.2 kg

DRUGS (7)
  1. REVLIMID [Suspect]
     Indication: MULTIPLE MYELOMA
     Dosage: 25 MG, 1 IN 1 D, PO ; 10 MG, 1 IN 1 D, PO
     Route: 048
     Dates: start: 20110801
  2. REVLIMID [Suspect]
     Indication: MULTIPLE MYELOMA
     Dosage: 25 MG, 1 IN 1 D, PO ; 10 MG, 1 IN 1 D, PO
     Route: 048
     Dates: start: 20110609
  3. ZOEMTA (ZOLEDRONIC ACID) [Concomitant]
  4. DECADRON [Concomitant]
  5. NEUPOGEN [Concomitant]
  6. PAXIL [Concomitant]
  7. CALCIUM CARBONATE [Concomitant]

REACTIONS (1)
  - THROMBOSIS [None]
